FAERS Safety Report 9772307 (Version 2)
Quarter: 2014Q1

REPORT INFORMATION
  Report Type: Report from Study
  Country: IL (occurrence: IL)
  Receive Date: 20131219
  Receipt Date: 20140307
  Transmission Date: 20141002
  Serious: Yes (Hospitalization)
  Sender: FDA-Public Use
  Company Number: PHHY2013IL148541

PATIENT
  Age: 50 Year
  Sex: Female

DRUGS (4)
  1. TASIGNA [Suspect]
     Indication: CHRONIC MYELOID LEUKAEMIA
     Dosage: 200 MG, BID
     Route: 048
     Dates: start: 2010
  2. FERRIFOL [Concomitant]
  3. OMEPRADEX [Concomitant]
     Dosage: 20 MG, BID
  4. TRAMADEX [Concomitant]
     Dosage: 50 MG

REACTIONS (6)
  - International normalised ratio increased [Recovered/Resolved]
  - Chest pain [Recovering/Resolving]
  - Dyspnoea [Not Recovered/Not Resolved]
  - Musculoskeletal pain [Recovering/Resolving]
  - Pain in extremity [Recovering/Resolving]
  - Abdominal pain upper [Not Recovered/Not Resolved]
